FAERS Safety Report 4911769-1 (Version None)
Quarter: 2006Q1

REPORT INFORMATION
  Report Type: 
  Country: None (occurrence: None)
  Receive Date: 20060213
  Receipt Date: 20060213
  Transmission Date: 20060701
  Serious: Yes (Other)
  Sender: FDA-Public Use
  Company Number: None

PATIENT
  Age: 41 Year
  Sex: Female
  Weight: 37.6486 kg

DRUGS (3)
  1. TRAMADOL HCL [Suspect]
     Indication: NERVE INJURY
     Dosage: 1 TABLET  EVERY 6 HRS.   PO
     Route: 048
     Dates: start: 20041217, end: 20050730
  2. TRAMADOL HCL [Suspect]
     Indication: PAIN
     Dosage: 1 TABLET  EVERY 6 HRS.   PO
     Route: 048
     Dates: start: 20041217, end: 20050730
  3. ALLEGRA-D   TABLET  SA       AVENT  RS-CRC [Suspect]
     Indication: MULTIPLE ALLERGIES
     Dosage: 1 TABLET   TWICE DAILY  PO
     Route: 048
     Dates: start: 20010501, end: 20060208

REACTIONS (8)
  - BALANCE DISORDER [None]
  - DIZZINESS [None]
  - DYSPNOEA [None]
  - DYSSTASIA [None]
  - HEADACHE [None]
  - HEART RATE INCREASED [None]
  - LOSS OF CONSCIOUSNESS [None]
  - PALPITATIONS [None]
